FAERS Safety Report 22290000 (Version 2)
Quarter: 2023Q2

REPORT INFORMATION
  Report Type: Other
  Country: GB (occurrence: None)
  Receive Date: 20230505
  Receipt Date: 20230529
  Transmission Date: 20230722
  Serious: Yes (Other)
  Sender: FDA-Public Use
  Company Number: GB-ROCHE-2568343

PATIENT
  Age: 74 Year
  Sex: Female

DRUGS (37)
  1. DOCETAXEL [Suspect]
     Active Substance: DOCETAXEL
     Indication: Breast cancer metastatic
     Dosage: NUMBER OF CYCLE: 6
     Route: 042
     Dates: start: 20170501
  2. TRASTUZUMAB [Suspect]
     Active Substance: TRASTUZUMAB
     Indication: Breast cancer metastatic
     Route: 041
     Dates: start: 20170522
  3. TRASTUZUMAB [Suspect]
     Active Substance: TRASTUZUMAB
     Route: 042
     Dates: start: 20170428, end: 20170428
  4. PERTUZUMAB [Suspect]
     Active Substance: PERTUZUMAB
     Indication: Breast cancer metastatic
     Route: 042
     Dates: start: 20170501, end: 201705
  5. TAMOXIFEN [Suspect]
     Active Substance: TAMOXIFEN
     Indication: Breast cancer metastatic
     Route: 048
     Dates: start: 20161115, end: 201704
  6. GLICLAZIDE [Concomitant]
     Active Substance: GLICLAZIDE
     Route: 048
     Dates: end: 20171001
  7. DAPAGLIFLOZIN [Concomitant]
     Active Substance: DAPAGLIFLOZIN
     Route: 048
  8. SAXAGLIPTIN [Concomitant]
     Active Substance: SAXAGLIPTIN
     Route: 048
     Dates: start: 2014
  9. OMEPRAZOLE [Concomitant]
     Active Substance: OMEPRAZOLE
     Route: 048
     Dates: end: 201712
  10. NAPROXEN [Concomitant]
     Active Substance: NAPROXEN
     Route: 048
     Dates: start: 20161115, end: 20170216
  11. COCODAMOL [Concomitant]
     Active Substance: ACETAMINOPHEN\CODEINE PHOSPHATE
     Route: 048
     Dates: start: 20161115
  12. LOSARTAN [Concomitant]
     Active Substance: LOSARTAN
     Route: 048
     Dates: start: 20151027, end: 20170217
  13. DENOSUMAB [Concomitant]
     Active Substance: DENOSUMAB
     Route: 058
     Dates: start: 20170107
  14. LOPERAMIDE [Concomitant]
     Active Substance: LOPERAMIDE
     Indication: Diarrhoea
     Route: 048
     Dates: start: 201706, end: 201706
  15. CIPROFLOXACIN [Concomitant]
     Active Substance: CIPROFLOXACIN
     Route: 048
     Dates: start: 20170429, end: 20170505
  16. CIPROFLOXACIN [Concomitant]
     Active Substance: CIPROFLOXACIN
     Route: 042
     Dates: start: 20190407, end: 20190408
  17. DALTEPARIN [Concomitant]
     Active Substance: DALTEPARIN
     Dosage: 5000 UNIT
     Route: 058
     Dates: start: 20170704, end: 20171201
  18. DOXYCYCLINE [Concomitant]
     Active Substance: DOXYCYCLINE
     Route: 048
     Dates: start: 20170430, end: 20170505
  19. METRONIDAZOLE [Concomitant]
     Active Substance: METRONIDAZOLE
     Route: 048
     Dates: start: 20170429, end: 20170429
  20. MOVICOL [Concomitant]
     Active Substance: POLYETHYLENE GLYCOL 3350\POTASSIUM CHLORIDE\SODIUM BICARBONATE\SODIUM CHLORIDE
     Route: 048
     Dates: start: 20170430, end: 20170514
  21. TEICOPLANIN [Concomitant]
     Active Substance: TEICOPLANIN
     Route: 042
     Dates: start: 20170429, end: 20170429
  22. TEICOPLANIN [Concomitant]
     Active Substance: TEICOPLANIN
     Route: 042
     Dates: start: 20191224, end: 20191225
  23. ANASTROZOLE [Concomitant]
     Active Substance: ANASTROZOLE
     Dates: start: 2014, end: 201611
  24. TAMOXIFEN [Concomitant]
     Active Substance: TAMOXIFEN
     Dates: start: 201611, end: 201704
  25. CLOBETASOL [Concomitant]
     Active Substance: CLOBETASOL
     Route: 067
     Dates: start: 20180716
  26. AMOXICILLIN [Concomitant]
     Active Substance: AMOXICILLIN
     Route: 048
     Dates: start: 20190104, end: 20190118
  27. OMEPRAZOLE [Concomitant]
     Active Substance: OMEPRAZOLE
     Route: 048
     Dates: start: 20180413
  28. ACYCLOVIR [Concomitant]
     Active Substance: ACYCLOVIR
     Route: 042
     Dates: start: 20190407, end: 20190409
  29. ACYCLOVIR [Concomitant]
     Active Substance: ACYCLOVIR
     Route: 048
     Dates: start: 20190411, end: 20190416
  30. TRIMETHOPRIM [Concomitant]
     Active Substance: TRIMETHOPRIM
     Route: 048
     Dates: start: 20200107, end: 20200109
  31. GENTAMICIN [Concomitant]
     Active Substance: GENTAMICIN
     Route: 042
     Dates: start: 20191225, end: 20191230
  32. EXEMESTANE [Concomitant]
     Active Substance: EXEMESTANE
     Route: 048
     Dates: start: 20200104, end: 20200109
  33. NOVORAPID [Concomitant]
     Active Substance: INSULIN ASPART
     Dosage: 4 UNIT
     Route: 058
     Dates: start: 20200105, end: 20200108
  34. MORPHINE SULFATE [Concomitant]
     Active Substance: MORPHINE SULFATE
     Route: 048
     Dates: start: 20200106, end: 20200108
  35. TRIMETHOPRIM [Concomitant]
     Active Substance: TRIMETHOPRIM
     Route: 048
     Dates: start: 20200107, end: 20200109
  36. TRIMETHOPRIM [Concomitant]
     Active Substance: TRIMETHOPRIM
     Route: 048
     Dates: start: 20200107, end: 20200109
  37. MIDAZOLAM [Concomitant]
     Active Substance: MIDAZOLAM
     Route: 058
     Dates: start: 20200108, end: 20200109

REACTIONS (3)
  - Deep vein thrombosis [Recovered/Resolved]
  - Herpes zoster [Recovered/Resolved]
  - Skull fracture [Recovered/Resolved]

NARRATIVE: CASE EVENT DATE: 20170703
